FAERS Safety Report 24078769 (Version 2)
Quarter: 2024Q3

REPORT INFORMATION
  Report Type: Other
  Country: AU (occurrence: None)
  Receive Date: 20240711
  Receipt Date: 20240715
  Transmission Date: 20241017
  Serious: Yes (Hospitalization, Congenital Anomaly, Other)
  Sender: DEXCEL
  Company Number: AU-DEXPHARM-2024-2194

PATIENT

DRUGS (8)
  1. LEVETIRACETAM [Suspect]
     Active Substance: LEVETIRACETAM
     Indication: Epilepsy
  2. CLOBAZAM [Suspect]
     Active Substance: CLOBAZAM
     Dosage: FIRST DOSE_ ON THE START DATE
  3. CLOBAZAM [Suspect]
     Active Substance: CLOBAZAM
     Indication: Epilepsy
     Dosage: LAST DOSE TAKEN
  4. LAMOTRIGINE [Suspect]
     Active Substance: LAMOTRIGINE
     Indication: Epilepsy
  5. PHENOBARBITAL [Suspect]
     Active Substance: PHENOBARBITAL
     Indication: Epilepsy
     Dosage: FIRST DOSE_ ON THE START DATE
  6. PHENOBARBITAL [Suspect]
     Active Substance: PHENOBARBITAL
     Indication: Epilepsy
     Dosage: LAST DOSE TAKEN
  7. PHENYTOIN [Suspect]
     Active Substance: PHENYTOIN
     Indication: Epilepsy
  8. ZONISAMIDE [Suspect]
     Active Substance: ZONISAMIDE
     Indication: Epilepsy

REACTIONS (5)
  - Foetal exposure during pregnancy [Unknown]
  - Foetal malformation [Unknown]
  - Spina bifida [Unknown]
  - Cleft palate [Unknown]
  - Congenital aplasia [Unknown]
